FAERS Safety Report 23186973 (Version 1)
Quarter: 2023Q4

REPORT INFORMATION
  Report Type: Spontaneous
  Country: JP (occurrence: JP)
  Receive Date: 20231115
  Receipt Date: 20231115
  Transmission Date: 20240110
  Serious: No
  Sender: FDA-Public Use
  Company Number: JP-PFIZER INC-PV202300180000

PATIENT
  Sex: Female

DRUGS (1)
  1. ENBREL [Suspect]
     Active Substance: ETANERCEPT
     Dosage: UNK
     Route: 058

REACTIONS (4)
  - Wrong technique in device usage process [Unknown]
  - Product administered at inappropriate site [Unknown]
  - Injection site haemorrhage [Recovered/Resolved]
  - Injection site pain [Unknown]
